FAERS Safety Report 24259288 (Version 1)
Quarter: 2024Q3

REPORT INFORMATION
  Report Type: Spontaneous
  Country: BR (occurrence: BR)
  Receive Date: 20240828
  Receipt Date: 20240828
  Transmission Date: 20241016
  Serious: Yes (Other)
  Sender: BAYER
  Company Number: BR-BAYER-2023A097633

PATIENT
  Age: 21 Year
  Sex: Female
  Weight: 60 kg

DRUGS (1)
  1. DIENOGEST\ESTRADIOL VALERATE [Suspect]
     Active Substance: DIENOGEST\ESTRADIOL VALERATE
     Indication: Contraception
     Dosage: 1 DF, QD
     Route: 048
     Dates: start: 20230115, end: 20230702

REACTIONS (3)
  - Pregnancy on oral contraceptive [None]
  - Drug ineffective [None]
  - Abortion spontaneous [None]

NARRATIVE: CASE EVENT DATE: 20230601
